FAERS Safety Report 20726254 (Version 1)
Quarter: 2022Q2

REPORT INFORMATION
  Report Type: Spontaneous
  Country: FR (occurrence: FR)
  Receive Date: 20220419
  Receipt Date: 20220419
  Transmission Date: 20220720
  Serious: Yes (Hospitalization)
  Sender: FDA-Public Use
  Company Number: None

PATIENT
  Age: 49 Year
  Sex: Male
  Weight: 54 kg

DRUGS (12)
  1. KEPPRA [Suspect]
     Active Substance: LEVETIRACETAM
     Indication: Product used for unknown indication
     Dosage: 1500 MILLIGRAM, ONE TIME DOSE
     Route: 048
     Dates: start: 20220318, end: 20220318
  2. TEGRETOL [Suspect]
     Active Substance: CARBAMAZEPINE
     Indication: Product used for unknown indication
     Dosage: 400 MILLIGRAM, ONE TIME DOSE
     Route: 048
     Dates: start: 20220318, end: 20220318
  3. RISPERDAL [Suspect]
     Active Substance: RISPERIDONE
     Indication: Product used for unknown indication
     Dosage: 2 MILLIGRAM, ONE TIME DOSE
     Route: 048
     Dates: start: 20220318, end: 20220318
  4. DOXYCYCLINE HYCLATE [Suspect]
     Active Substance: DOXYCYCLINE HYCLATE
     Indication: Product used for unknown indication
     Dosage: 50 DOSAGE FORM, ONE TIME DOSE
     Route: 048
     Dates: start: 20220318, end: 20220318
  5. OROCAL VITAMINE D3 [CALCIUM CARBONATE;COLECALCIFEROL] [Concomitant]
     Indication: Vitamin D deficiency
     Dosage: 500 MG/200 U.I, 1 DOSAGE FORM, ONCE DAILY (QD)
     Route: 048
     Dates: end: 20220317
  6. OROCAL VITAMINE D3 [CALCIUM CARBONATE;COLECALCIFEROL] [Concomitant]
     Dosage: 500 MG/200 U.I, 1 DOSAGE FORM, 2X/DAY (BID)
     Route: 048
     Dates: start: 20220319
  7. CLOBAZAM [Concomitant]
     Active Substance: CLOBAZAM
     Indication: Epilepsy
     Dosage: 5MG IN AM, 5MG AT NOON AND 10MG AT PM
     Route: 048
     Dates: end: 20220317
  8. CLOBAZAM [Concomitant]
     Active Substance: CLOBAZAM
     Dosage: 5MG IN AM, 5MG AT NOON AND 10MG AT PM
     Route: 048
     Dates: start: 20220319
  9. ZONEGRAN [Concomitant]
     Active Substance: ZONISAMIDE
     Indication: Anxiety
     Dosage: 200 MILLIGRAM, 2X/DAY (BID)
     Route: 048
     Dates: start: 20220319
  10. ZONEGRAN [Concomitant]
     Active Substance: ZONISAMIDE
     Dosage: 200 MILLIGRAM, 2X/DAY (BID)
     Route: 048
     Dates: end: 20220317
  11. FYCOMPA [Concomitant]
     Active Substance: PERAMPANEL
     Indication: Epilepsy
     Dosage: 6 MILLIGRAM, ONCE DAILY (QD)
     Route: 048
     Dates: end: 20220317
  12. FYCOMPA [Concomitant]
     Active Substance: PERAMPANEL
     Dosage: 6 MILLIGRAM, ONCE DAILY (QD)
     Route: 048
     Dates: start: 20220319

REACTIONS (2)
  - Epilepsy [Recovered/Resolved]
  - Wrong patient received product [Unknown]

NARRATIVE: CASE EVENT DATE: 20220318
